FAERS Safety Report 20344365 (Version 3)
Quarter: 2022Q1

REPORT INFORMATION
  Report Type: Spontaneous
  Country: DK (occurrence: DK)
  Receive Date: 20220118
  Receipt Date: 20220308
  Transmission Date: 20220423
  Serious: Yes (Hospitalization, Other)
  Sender: FDA-Public Use
  Company Number: DK-MLMSERVICE-20220104-3300574-1

PATIENT
  Age: 31 Year
  Sex: Female
  Weight: 59 kg

DRUGS (1)
  1. SERTRALINE [Suspect]
     Active Substance: SERTRALINE HYDROCHLORIDE
     Indication: Obsessive-compulsive disorder
     Route: 048
     Dates: start: 20190118, end: 20190729

REACTIONS (3)
  - Atrioventricular block complete [Recovered/Resolved]
  - Atrioventricular dissociation [Recovered/Resolved]
  - Maternal exposure during pregnancy [Unknown]

NARRATIVE: CASE EVENT DATE: 20190101
